FAERS Safety Report 4512410-2 (Version None)
Quarter: 2004Q4

REPORT INFORMATION
  Report Type: 
  Country: None (occurrence: None)
  Receive Date: 20041124
  Receipt Date: 20041115
  Transmission Date: 20050328
  Serious: Yes (Other)
  Sender: FDA-Public Use
  Company Number: 2004093802

PATIENT
  Age: 10 Month
  Sex: Male

DRUGS (1)
  1. DESITIN DIAPER RASH (ZINC OXIDE) [Suspect]
     Indication: ECZEMA
     Dosage: USED FROM BIRTH TIL AGE OF 3, NOW PRN, TOPICAL
     Route: 061
     Dates: start: 19890101

REACTIONS (2)
  - EYE OPERATION [None]
  - PENILE OPERATION [None]
